FAERS Safety Report 12986975 (Version 1)
Quarter: 2016Q4

REPORT INFORMATION
  Report Type: Spontaneous
  Country: US (occurrence: US)
  Receive Date: 20161130
  Receipt Date: 20161130
  Transmission Date: 20170207
  Serious: Yes (Hospitalization)
  Sender: FDA-Public Use
  Company Number: US-PFIZER INC-2016551413

PATIENT
  Age: 70 Year
  Sex: Male

DRUGS (2)
  1. SUTENT [Suspect]
     Active Substance: SUNITINIB MALATE
     Indication: RENAL CELL CARCINOMA
     Dosage: 1 DF, DAILY FOR 2 WEEKS AND THEN OFF FOR 1 WEEK
     Route: 048
     Dates: start: 201512, end: 2016
  2. METFORMIN [Concomitant]
     Active Substance: METFORMIN HYDROCHLORIDE
     Dosage: UNK

REACTIONS (1)
  - Haemorrhage [Recovered/Resolved]
